FAERS Safety Report 9109187 (Version 1)
Quarter: 2013Q1

REPORT INFORMATION
  Report Type: Spontaneous
  Country: TR (occurrence: TR)
  Receive Date: 20130222
  Receipt Date: 20130222
  Transmission Date: 20140127
  Serious: Yes (Other)
  Sender: FDA-Public Use
  Company Number: TR-ELI_LILLY_AND_COMPANY-TR201302004194

PATIENT
  Sex: Female

DRUGS (2)
  1. HUMAN INSULIN [Suspect]
     Indication: DIABETES MELLITUS
  2. HUMAN INSULIN [Suspect]
     Indication: DIABETES MELLITUS

REACTIONS (2)
  - Abortion spontaneous [Recovered/Resolved]
  - Exposure during pregnancy [Recovered/Resolved]
